FAERS Safety Report 16152974 (Version 1)
Quarter: 2019Q2

REPORT INFORMATION
  Report Type: Spontaneous
  Country: US (occurrence: US)
  Receive Date: 20190403
  Receipt Date: 20190403
  Transmission Date: 20190711
  Serious: No
  Sender: FDA-Public Use
  Company Number: US-CIPLA LTD.-2019US01289

PATIENT

DRUGS (1)
  1. TESTOSTERONE. [Suspect]
     Active Substance: TESTOSTERONE
     Indication: BLOOD TESTOSTERONE DECREASED
     Dosage: UNK
     Route: 030
     Dates: start: 20190218

REACTIONS (5)
  - Pain [Unknown]
  - Product contamination physical [Unknown]
  - Back pain [Unknown]
  - Burning sensation [Unknown]
  - Vision blurred [Unknown]

NARRATIVE: CASE EVENT DATE: 20190218
